FAERS Safety Report 6767639-X (Version None)
Quarter: 2010Q2

REPORT INFORMATION
  Report Type: 
  Country: None (occurrence: None)
  Receive Date: 20100614
  Receipt Date: 20100608
  Transmission Date: 20101027
  Serious: Yes (Life-Threatening)
  Sender: FDA-Public Use
  Company Number: FR-ASTRAZENECA-2006CG01821

PATIENT
  Age: 17 Year
  Sex: Female
  Weight: 55 kg

DRUGS (8)
  1. DIPRIVAN [Suspect]
     Indication: CONVULSION
     Route: 042
     Dates: start: 20061024
  2. DIPRIVAN [Suspect]
     Indication: SEDATION
     Route: 042
     Dates: start: 20061024
  3. DIPRIVAN [Suspect]
     Route: 042
  4. DIPRIVAN [Suspect]
     Route: 042
  5. DIPRIVAN [Suspect]
     Route: 042
     Dates: end: 20061027
  6. DIPRIVAN [Suspect]
     Route: 042
     Dates: end: 20061027
  7. MIDAZOLAM [Concomitant]
     Route: 042
     Dates: start: 20061024
  8. ACYCLOVIR [Concomitant]

REACTIONS (2)
  - OFF LABEL USE [None]
  - PROPOFOL INFUSION SYNDROME [None]
